FAERS Safety Report 6050330-5 (Version None)
Quarter: 2009Q1

REPORT INFORMATION
  Report Type: 
  Country: None (occurrence: None)
  Receive Date: 20090126
  Receipt Date: 20090115
  Transmission Date: 20090719
  Serious: Yes (Hospitalization)
  Sender: FDA-Public Use
  Company Number: DE-AMGEN-US329208

PATIENT
  Sex: Female

DRUGS (11)
  1. ENBREL [Suspect]
     Indication: RHEUMATOID ARTHRITIS
     Route: 058
     Dates: start: 20070401
  2. METHOTREXATE [Suspect]
     Route: 065
     Dates: start: 20020901
  3. PREDNISOLONE [Concomitant]
     Route: 065
  4. DILTIAZEM [Concomitant]
     Route: 065
  5. BISOPROLOL FUMARATE [Concomitant]
     Route: 065
  6. ALLOPURINOL [Concomitant]
     Route: 065
  7. CELEBREX [Concomitant]
     Route: 065
  8. CALCILAC [Concomitant]
     Route: 065
  9. ACTONEL [Concomitant]
     Route: 065
  10. NEXIUM [Concomitant]
     Route: 065
  11. TRIAMTERENE AND HYDROCHLOROTHIAZIDE [Concomitant]
     Route: 065

REACTIONS (2)
  - FOOT OPERATION [None]
  - SKIN ULCER [None]
